FAERS Safety Report 21435606 (Version 2)
Quarter: 2024Q1

REPORT INFORMATION
  Report Type: Report from Study
  Country: US (occurrence: US)
  Receive Date: 20221010
  Receipt Date: 20240206
  Transmission Date: 20240410
  Serious: No
  Sender: FDA-Public Use
  Company Number: US-SA-SAC20221003001526

PATIENT
  Age: 1 Year
  Sex: Female
  Weight: 13 kg

DRUGS (2)
  1. DUPIXENT [Suspect]
     Active Substance: DUPILUMAB
     Indication: Dermatitis atopic
     Dosage: UNK
     Route: 058
  2. DUPIXENT [Suspect]
     Active Substance: DUPILUMAB
     Dosage: 200 MG (DUPIXENT 200 MG INITIAL DOSE AND 200MG MAINTENANCE DOSE EVERY FOUR WEEKS)
     Route: 058
     Dates: start: 20240110

REACTIONS (3)
  - Malaise [Recovering/Resolving]
  - Product use issue [Recovering/Resolving]
  - Off label use of device [Unknown]

NARRATIVE: CASE EVENT DATE: 20240110
